FAERS Safety Report 23587381 (Version 1)
Quarter: 2024Q1

REPORT INFORMATION
  Report Type: Spontaneous
  Country: PK (occurrence: PK)
  Receive Date: 20240301
  Receipt Date: 20240301
  Transmission Date: 20240410
  Serious: Yes (Hospitalization, Other)
  Sender: FDA-Public Use
  Company Number: PK-PFIZER INC-202101191854

PATIENT
  Age: 66 Year
  Sex: Female

DRUGS (4)
  1. IBRANCE [Suspect]
     Active Substance: PALBOCICLIB
     Indication: Breast cancer metastatic
     Dosage: 125 MG
  2. IBRANCE [Suspect]
     Active Substance: PALBOCICLIB
     Dosage: 100 MG, CYCLIC (21 DAYS)
     Route: 048
     Dates: start: 20210702
  3. IBRANCE [Suspect]
     Active Substance: PALBOCICLIB
     Dosage: 100MG D1-21, 3 WEEKS ON, 1 WEEKS OFF
     Route: 048
     Dates: start: 202206
  4. FULVESTRANT [Concomitant]
     Active Substance: FULVESTRANT
     Dosage: UNK
     Dates: start: 202108

REACTIONS (14)
  - Radiation pneumonitis [Unknown]
  - Pulmonary mass [Unknown]
  - Lymphadenopathy [Unknown]
  - Infection [Unknown]
  - Pleural thickening [Unknown]
  - Atelectasis [Unknown]
  - Pleural calcification [Unknown]
  - Cholelithiasis [Unknown]
  - Neoplasm progression [Unknown]
  - Musculoskeletal chest pain [Unknown]
  - Gastrooesophageal reflux disease [Unknown]
  - Off label use [Not Recovered/Not Resolved]
  - Pleural effusion [Unknown]
  - Blood pressure increased [Unknown]
